FAERS Safety Report 8692497 (Version 2)
Quarter: 2012Q4

REPORT INFORMATION
  Report Type: Report from Study
  Country: GB (occurrence: GB)
  Receive Date: 20120730
  Receipt Date: 20120907
  Transmission Date: 20130627
  Serious: Yes (Other)
  Sender: FDA-Public Use
  Company Number: GB-CELGENEUS-167-C5013-12071988

PATIENT
  Age: 87 Year
  Sex: Male
  Weight: 53.3 kg

DRUGS (10)
  1. THALIDOMIDE [Suspect]
     Indication: MULTIPLE MYELOMA
     Dosage: 50 Milligram
     Route: 048
     Dates: start: 20100614, end: 20110411
  2. MELPHALAN [Suspect]
     Indication: MULTIPLE MYELOMA
     Dosage: 12 Milligram
     Route: 065
     Dates: start: 20100614, end: 20110411
  3. PREDNISONE [Suspect]
     Indication: MULTIPLE MYELOMA
     Dosage: 125 Milligram
     Route: 065
     Dates: start: 20100614, end: 20110411
  4. OMEPRAZOLE [Concomitant]
     Indication: GASTRITIS PROPHYLAXIS
     Dosage: 20 Milligram
     Route: 048
     Dates: start: 20100726
  5. MST [Concomitant]
     Indication: BACK PAIN
     Dosage: 60 Milligram
     Route: 048
     Dates: start: 20100620
  6. ACICLOVIR [Concomitant]
     Indication: PROPHYLAXIS
     Dosage: 800 Milligram
     Route: 048
     Dates: start: 20100521
  7. DOMPERIDONE [Concomitant]
     Indication: NAUSEA PROPHYLAXIS
     Dosage: 30 Milligram
     Route: 048
     Dates: start: 20110313
  8. PARACETAMOL [Concomitant]
     Indication: BACK PAIN
     Dosage: 4 Gram
     Route: 048
     Dates: start: 2010
  9. ZOLEDRONATE [Concomitant]
     Indication: PROPHYLAXIS
     Dosage: 4 Milligram
     Route: 041
     Dates: start: 20100810
  10. ORAMORPH [Concomitant]
     Indication: BACK PAIN
     Dosage: 5-10
     Route: 048
     Dates: start: 20100518

REACTIONS (1)
  - Plasmacytoma [Recovered/Resolved]
